FAERS Safety Report 23081383 (Version 3)
Quarter: 2023Q4

REPORT INFORMATION
  Report Type: Spontaneous
  Country: KR (occurrence: KR)
  Receive Date: 20231018
  Receipt Date: 20231204
  Transmission Date: 20240110
  Serious: Yes (Hospitalization)
  Sender: FDA-Public Use
  Company Number: KR-Eisai Medical Research-EC-2023-149829

PATIENT
  Age: 58 Year
  Sex: Male

DRUGS (3)
  1. LENVIMA [Suspect]
     Active Substance: LENVATINIB
     Indication: Hepatic cancer
     Dosage: UNKNOWN DOSE AND FREQUENCY
     Route: 048
     Dates: end: 202309
  2. ATEZOLIZUMAB [Concomitant]
     Active Substance: ATEZOLIZUMAB
     Indication: Hepatic cancer
     Dosage: UNKNOWN DOSE AND FREQUENCY
     Route: 065
  3. BEVACIZUMAB [Concomitant]
     Active Substance: BEVACIZUMAB
     Indication: Hepatic cancer
     Dosage: UNKNOWN DOSE AND FREQUENCY

REACTIONS (1)
  - Peptic ulcer [Recovered/Resolved]

NARRATIVE: CASE EVENT DATE: 20230901
